FAERS Safety Report 10137720 (Version 1)
Quarter: 2014Q2

REPORT INFORMATION
  Report Type: Spontaneous
  Country: US (occurrence: None)
  Receive Date: 20140425
  Receipt Date: 20140425
  Transmission Date: 20141212
  Serious: Yes (Life-Threatening, Hospitalization)
  Sender: FDA-Public Use
  Company Number: 2013-251

PATIENT
  Age: 75 Year
  Sex: Male

DRUGS (3)
  1. PRIALT [Suspect]
     Indication: PAIN
     Dosage: 0.08 MCG, ONCE/HOUR
     Route: 037
  2. PRIALT [Suspect]
     Indication: POST LAMINECTOMY SYNDROME
     Dosage: 0.08 MCG, ONCE/HOUR
     Route: 037
  3. PRIALT [Suspect]
     Indication: POST LAMINECTOMY SYNDROME
     Dosage: 0.08 MCG, ONCE/HOUR
     Route: 037

REACTIONS (4)
  - Pneumonia [None]
  - Haematoma [None]
  - Pain [None]
  - Haemorrhage [None]
